FAERS Safety Report 20049555 (Version 1)
Quarter: 2021Q4

REPORT INFORMATION
  Report Type: Spontaneous
  Country: CN (occurrence: CN)
  Receive Date: 20211109
  Receipt Date: 20211109
  Transmission Date: 20220303
  Serious: Yes (Other)
  Sender: FDA-Public Use
  Company Number: CN-ELI_LILLY_AND_COMPANY-CN202111001427

PATIENT
  Age: 67 Year
  Sex: Female
  Weight: 58 kg

DRUGS (13)
  1. GEMZAR [Suspect]
     Active Substance: GEMCITABINE HYDROCHLORIDE
     Indication: Chemotherapy
     Dosage: UNK UNK, OTHER (EVERY 21 DAYS)
     Route: 041
     Dates: start: 20210619, end: 20210914
  2. GEMZAR [Suspect]
     Active Substance: GEMCITABINE HYDROCHLORIDE
     Dosage: 1 G, OTHER (EVERY 21 DAYS)
     Route: 041
     Dates: start: 20211005, end: 20211005
  3. GEMZAR [Suspect]
     Active Substance: GEMCITABINE HYDROCHLORIDE
     Dosage: 400 MG, OTHER (EVERY 21 DAYS)
     Route: 041
     Dates: start: 20211005, end: 20211005
  4. NIMOTUZUMAB [Suspect]
     Active Substance: NIMOTUZUMAB
     Indication: Immunoglobulin therapy
     Dosage: UNK UNK, OTHER  (EVERY 21 DAYS)
     Route: 041
     Dates: start: 20210619, end: 20210914
  5. NIMOTUZUMAB [Suspect]
     Active Substance: NIMOTUZUMAB
     Dosage: 400 MG, OTHER  (EVERY 21 DAYS)
     Route: 041
     Dates: start: 20211007, end: 20211007
  6. TISLELIZUMAB [Suspect]
     Active Substance: TISLELIZUMAB
     Indication: Immunochemotherapy
     Dosage: UNK UNK, OTHER  (EVERY 21 DAYS)
     Route: 041
     Dates: start: 20210619, end: 20210914
  7. TISLELIZUMAB [Suspect]
     Active Substance: TISLELIZUMAB
     Dosage: 200 MG, OTHER  (EVERY 21 DAYS)
     Route: 041
     Dates: start: 20211007, end: 20211007
  8. PACLITAXEL [Suspect]
     Active Substance: PACLITAXEL
     Indication: Chemotherapy
     Dosage: UNK UNK, OTHER (EVERY 21 DAYS)
     Route: 041
     Dates: start: 20210619, end: 20210914
  9. PACLITAXEL [Suspect]
     Active Substance: PACLITAXEL
     Dosage: 200 MG, OTHER  (EVERY 21 DAYS)
     Route: 041
     Dates: start: 20211005, end: 20211005
  10. SODIUM CHLORIDE [Concomitant]
     Active Substance: SODIUM CHLORIDE
     Indication: Medication dilution
     Dosage: 100 ML, SINGLE
     Route: 041
     Dates: start: 20211005, end: 20211005
  11. SODIUM CHLORIDE [Concomitant]
     Active Substance: SODIUM CHLORIDE
     Dosage: 40 ML, SINGLE
     Route: 041
     Dates: start: 20211005, end: 20211005
  12. SODIUM CHLORIDE [Concomitant]
     Active Substance: SODIUM CHLORIDE
     Dosage: 250 ML, SINGLE
     Route: 041
     Dates: start: 20211007, end: 20211007
  13. SODIUM CHLORIDE [Concomitant]
     Active Substance: SODIUM CHLORIDE
     Dosage: 100 ML, SINGLE
     Route: 041
     Dates: start: 20211007, end: 20211007

REACTIONS (1)
  - Peripheral nerve injury [Recovering/Resolving]

NARRATIVE: CASE EVENT DATE: 20211011
